FAERS Safety Report 15674701 (Version 2)
Quarter: 2019Q3

REPORT INFORMATION
  Report Type: Spontaneous
  Country: GB (occurrence: GB)
  Receive Date: 20181130
  Receipt Date: 20190815
  Transmission Date: 20191004
  Serious: Yes (Hospitalization)
  Sender: FDA-Public Use
  Company Number: GB-ASTRAZENECA-2018SF54683

PATIENT
  Age: 71 Year
  Sex: Female

DRUGS (1)
  1. DURVALUMAB. [Suspect]
     Active Substance: DURVALUMAB
     Indication: CHEMOTHERAPY
     Dosage: FIRST CYCLE
     Route: 042

REACTIONS (3)
  - Blood pressure abnormal [Recovered/Resolved]
  - Septic shock [Unknown]
  - Pyrexia [Unknown]

NARRATIVE: CASE EVENT DATE: 20180613
